FAERS Safety Report 14698753 (Version 4)
Quarter: 2018Q2

REPORT INFORMATION
  Report Type: Spontaneous
  Country: US (occurrence: US)
  Receive Date: 20180330
  Receipt Date: 20180524
  Transmission Date: 20180711
  Serious: No
  Sender: FDA-Public Use
  Company Number: US-PFIZER INC-2018128464

PATIENT
  Age: 50 Year
  Sex: Female

DRUGS (2)
  1. XELJANZ [Suspect]
     Active Substance: TOFACITINIB CITRATE
     Dosage: 5 MG, 2X/DAY
     Route: 048
  2. RASUVO [Suspect]
     Active Substance: METHOTREXATE SODIUM
     Dosage: 20 MG, WEEKLY
     Route: 058

REACTIONS (10)
  - Dry eye [Unknown]
  - Skin lesion [Not Recovered/Not Resolved]
  - Dyspepsia [Unknown]
  - Swelling [Not Recovered/Not Resolved]
  - Feeling abnormal [Unknown]
  - Mouth ulceration [Unknown]
  - Drug effect incomplete [Not Recovered/Not Resolved]
  - Condition aggravated [Unknown]
  - Muscle spasms [Not Recovered/Not Resolved]
  - Asthenia [Not Recovered/Not Resolved]
